FAERS Safety Report 10163005 (Version 2)
Quarter: 2014Q3

REPORT INFORMATION
  Report Type: Spontaneous
  Country: US (occurrence: US)
  Receive Date: 20140509
  Receipt Date: 20140731
  Transmission Date: 20150326
  Serious: Yes (Other)
  Sender: FDA-Public Use
  Company Number: US-GILEAD-2014-0101866

PATIENT
  Age: 63 Year
  Sex: Female

DRUGS (4)
  1. LETAIRIS [Suspect]
     Active Substance: AMBRISENTAN
     Indication: CREST SYNDROME
  2. ADCIRCA [Concomitant]
     Active Substance: TADALAFIL
     Route: 065
  3. TYVASO [Concomitant]
     Active Substance: TREPROSTINIL
     Route: 065
  4. LETAIRIS [Suspect]
     Active Substance: AMBRISENTAN
     Indication: PULMONARY HYPERTENSION
     Dosage: 10 MG, QD
     Route: 065
     Dates: start: 20121120

REACTIONS (2)
  - Breast cancer [Unknown]
  - Influenza [Unknown]

NARRATIVE: CASE EVENT DATE: 20140422
